FAERS Safety Report 19254441 (Version 4)
Quarter: 2021Q4

REPORT INFORMATION
  Report Type: Report from Study
  Country: CN (occurrence: CN)
  Receive Date: 20210513
  Receipt Date: 20211129
  Transmission Date: 20220303
  Serious: Yes (Life-Threatening)
  Sender: FDA-Public Use
  Company Number: CN-ELI_LILLY_AND_COMPANY-CN202105004955

PATIENT
  Age: 63 Year
  Sex: Female

DRUGS (4)
  1. GEMCITABINE HYDROCHLORIDE [Suspect]
     Active Substance: GEMCITABINE HYDROCHLORIDE
     Indication: Triple negative breast cancer
     Dosage: 1000 MG/M2, (1600 MG) ON DAYS 1 AND 8 OF EACH 3-WEEK CYCLE
     Route: 042
     Dates: start: 20210415
  2. ATEZOLIZUMAB [Concomitant]
     Active Substance: ATEZOLIZUMAB
     Indication: Triple negative breast cancer
     Dosage: UNK, ONCE IN THREE WEEKS
     Route: 042
     Dates: start: 20210415
  3. ATEZOLIZUMAB [Concomitant]
     Active Substance: ATEZOLIZUMAB
     Dosage: UNK, ONCE IN THREE WEEKS
     Route: 042
     Dates: start: 20210415
  4. CARBOPLATIN [Concomitant]
     Active Substance: CARBOPLATIN
     Indication: Triple negative breast cancer
     Dosage: AUC 2 MG/ML/MIN (215 MG) ON DAYS 1 AND 8 OF EACH 3-WEEK TREATMENT CYCLE
     Route: 042
     Dates: start: 20210415

REACTIONS (1)
  - Neutrophil count decreased [Recovered/Resolved]

NARRATIVE: CASE EVENT DATE: 20210429
